FAERS Safety Report 10385862 (Version 2)
Quarter: 2014Q4

REPORT INFORMATION
  Report Type: Report from Study
  Country: US (occurrence: US)
  Receive Date: 20140814
  Receipt Date: 20141111
  Transmission Date: 20150528
  Serious: Yes (Hospitalization)
  Sender: FDA-Public Use
  Company Number: US-ACTELION-A-US2014-103375

PATIENT
  Age: 70 Year
  Sex: Male

DRUGS (1)
  1. MACITENTAN [Suspect]
     Active Substance: MACITENTAN
     Indication: PULMONARY ARTERIAL HYPERTENSION
     Dosage: 10 MG, QD
     Route: 048
     Dates: start: 20140611

REACTIONS (4)
  - Pruritus [Unknown]
  - Rectal haemorrhage [Unknown]
  - Transfusion [Unknown]
  - Rash [Unknown]

NARRATIVE: CASE EVENT DATE: 20140712
